FAERS Safety Report 17689083 (Version 1)
Quarter: 2020Q2

REPORT INFORMATION
  Report Type: Spontaneous
  Country: US (occurrence: US)
  Receive Date: 20200421
  Receipt Date: 20200421
  Transmission Date: 20200714
  Serious: Yes (Death, Hospitalization, Other)
  Sender: FDA-Public Use
  Company Number: US-CADILA HEALTHCARE LIMITED-US-ZYDUS-044996

PATIENT

DRUGS (3)
  1. BOSENTAN 62.5 MG TABLETS [Suspect]
     Active Substance: BOSENTAN
     Dosage: 19.375 UNK
     Route: 048
     Dates: start: 20191212, end: 20200316
  2. BOSENTAN 62.5 MG TABLETS [Suspect]
     Active Substance: BOSENTAN
     Indication: PULMONARY ARTERIAL HYPERTENSION
     Dosage: 62.5 MILLIGRAM,FREQUENCY :TWICE DAILY
     Route: 048
     Dates: end: 20200316
  3. SILDENAFIL CITRATE. [Concomitant]
     Active Substance: SILDENAFIL CITRATE
     Indication: PRODUCT USED FOR UNKNOWN INDICATION
     Dosage: UNK
     Route: 065
     Dates: end: 20200316

REACTIONS (5)
  - Brain death [Fatal]
  - Hospitalisation [Recovered/Resolved]
  - Unintentional medical device removal [Fatal]
  - Product use issue [Recovered/Resolved]
  - Cardiac arrest [Fatal]

NARRATIVE: CASE EVENT DATE: 20180317
